FAERS Safety Report 7355341-5 (Version None)
Quarter: 2011Q1

REPORT INFORMATION
  Report Type: 
  Country: None (occurrence: None)
  Receive Date: 20110316
  Receipt Date: 20110307
  Transmission Date: 20110831
  Serious: Yes (Hospitalization)
  Sender: FDA-Public Use
  Company Number: CN-ASTRAZENECA-2010SE41849

PATIENT
  Age: 55 Year
  Sex: Female

DRUGS (3)
  1. BETALOC ZOC [Suspect]
     Route: 048
  2. BETALOC ZOC [Suspect]
     Indication: HEART RATE INCREASED
     Route: 048
  3. BETALOC ZOC [Suspect]
     Route: 048

REACTIONS (5)
  - CONGENITAL TRICUSPID VALVE INCOMPETENCE [None]
  - RENAL FAILURE ACUTE [None]
  - RIGHT VENTRICULAR FAILURE [None]
  - METABOLIC ACIDOSIS [None]
  - ANAEMIA [None]
